FAERS Safety Report 14659149 (Version 1)
Quarter: 2018Q1

REPORT INFORMATION
  Report Type: Spontaneous
  Country: US (occurrence: US)
  Receive Date: 20180317
  Receipt Date: 20180317
  Transmission Date: 20180509
  Serious: Yes (Hospitalization)
  Sender: FDA-Public Use
  Company Number: None

PATIENT
  Age: 13 Year
  Sex: Female
  Weight: 33.5 kg

DRUGS (1)
  1. KYMRIAH [Suspect]
     Active Substance: TISAGENLECLEUCEL
     Indication: ACUTE LYMPHOCYTIC LEUKAEMIA
     Dosage: DOSING - 3.4 X 10^6 CAR-T VIABLE CELLS/KG
     Route: 042
     Dates: start: 20180109

REACTIONS (4)
  - Neurotoxicity [None]
  - Cytokine release syndrome [None]
  - Confusional state [None]
  - Febrile neutropenia [None]

NARRATIVE: CASE EVENT DATE: 20180110
